FAERS Safety Report 15699792 (Version 1)
Quarter: 2018Q4

REPORT INFORMATION
  Report Type: Spontaneous
  Country: BR (occurrence: BR)
  Receive Date: 20181207
  Receipt Date: 20181207
  Transmission Date: 20190205
  Serious: Yes (Other)
  Sender: FDA-Public Use
  Company Number: BR-ALEXION PHARMACEUTICALS INC.-A201815800

PATIENT
  Age: 47 Year
  Sex: Female
  Weight: 72 kg

DRUGS (2)
  1. SOLIRIS [Suspect]
     Active Substance: ECULIZUMAB
     Indication: ATYPICAL HAEMOLYTIC URAEMIC SYNDROME
     Dosage: 900 MG, EVERY 7 DAYS
     Route: 042
     Dates: start: 20161114, end: 20161206
  2. SOLIRIS [Suspect]
     Active Substance: ECULIZUMAB
     Dosage: 1200 MG, EVERY 14 DAYS
     Route: 042
     Dates: start: 20161213

REACTIONS (3)
  - Peripheral swelling [Recovered/Resolved]
  - Vein disorder [Recovered/Resolved]
  - Vascular occlusion [Recovered/Resolved]

NARRATIVE: CASE EVENT DATE: 201805
